FAERS Safety Report 18559058 (Version 1)
Quarter: 2020Q4

REPORT INFORMATION
  Report Type: Spontaneous
  Country: US (occurrence: US)
  Receive Date: 20201125
  Receipt Date: 20201125
  Transmission Date: 20210114
  Serious: No
  Sender: FDA-Public Use
  Company Number: None

PATIENT
  Sex: Male

DRUGS (1)
  1. TALTZ [Suspect]
     Active Substance: IXEKIZUMAB
     Indication: PSORIASIS
     Dosage: OTHER FREQUENCY:INJ DA 1, EV 4 WKS;?SEE EVENT
     Route: 058
     Dates: start: 202010

REACTIONS (1)
  - Drug ineffective [None]
